FAERS Safety Report 4311646-3 (Version None)
Quarter: 2004Q1

REPORT INFORMATION
  Report Type: 
  Country: None (occurrence: None)
  Receive Date: 20040304
  Receipt Date: 20040210
  Transmission Date: 20041129
  Serious: Yes (Hospitalization)
  Sender: FDA-Public Use
  Company Number: WAES 0402USA01038

PATIENT
  Age: 90 Year
  Sex: Female

DRUGS (7)
  1. COMPOUND EPITHANATE-G [Suspect]
     Route: 048
     Dates: end: 20040203
  2. BROMHEXINE HYDROCHLORIDE [Suspect]
     Route: 048
     Dates: end: 20040203
  3. DIPYRIDAMOLE [Suspect]
     Route: 048
     Dates: end: 20040203
  4. PEPCID [Suspect]
     Route: 048
     Dates: end: 20040203
  5. FLAVOXATE HYDROCHLORIDE [Suspect]
     Route: 048
     Dates: end: 20040203
  6. MEDAZEPAM [Suspect]
     Route: 048
     Dates: end: 20040203
  7. VITAMIN E NICOTINATE [Suspect]
     Route: 048
     Dates: end: 20040203

REACTIONS (3)
  - HYPOXIA [None]
  - PNEUMONIA [None]
  - PNEUMONITIS [None]
